FAERS Safety Report 23628133 (Version 2)
Quarter: 2024Q1

REPORT INFORMATION
  Report Type: Spontaneous
  Country: ES (occurrence: ES)
  Receive Date: 20240313
  Receipt Date: 20240321
  Transmission Date: 20240410
  Serious: Yes (Hospitalization, Other)
  Sender: FDA-Public Use
  Company Number: ES-JUBILANT CADISTA PHARMACEUTICALS-2024ES000347

PATIENT
  Age: 75 Year
  Sex: Male

DRUGS (1)
  1. OLMESARTAN [Suspect]
     Active Substance: OLMESARTAN
     Indication: Hypertension
     Dosage: UNK, UNK
     Route: 065

REACTIONS (3)
  - Colitis microscopic [Unknown]
  - Diarrhoea [Recovered/Resolved]
  - Weight decreased [Unknown]
